FAERS Safety Report 14949690 (Version 1)
Quarter: 2018Q2

REPORT INFORMATION
  Report Type: Spontaneous
  Country: JP (occurrence: JP)
  Receive Date: 20180529
  Receipt Date: 20180529
  Transmission Date: 20180711
  Serious: Yes (Other)
  Sender: FDA-Public Use
  Company Number: JP-ELI_LILLY_AND_COMPANY-JP201805011978

PATIENT
  Age: 70 Year

DRUGS (1)
  1. ERBITUX [Suspect]
     Active Substance: CETUXIMAB
     Indication: OROPHARYNGEAL CANCER
     Dosage: UNK UNK, UNKNOWN
     Route: 041

REACTIONS (6)
  - Dysphagia [Unknown]
  - Weight decreased [Unknown]
  - Dysgeusia [Unknown]
  - Dry mouth [Unknown]
  - Dermatitis [Unknown]
  - Mucosal inflammation [Unknown]
